FAERS Safety Report 19511390 (Version 2)
Quarter: 2021Q3

REPORT INFORMATION
  Report Type: Report from Study
  Country: US (occurrence: US)
  Receive Date: 20210709
  Receipt Date: 20210712
  Transmission Date: 20211014
  Serious: No
  Sender: FDA-Public Use
  Company Number: NVSC2021US145538

PATIENT
  Age: 32 Year
  Sex: Male

DRUGS (1)
  1. ENTRESTO [Suspect]
     Active Substance: SACUBITRIL\VALSARTAN
     Indication: CARDIAC FAILURE
     Dosage: 24.26 MG, BID
     Route: 048
     Dates: start: 202008

REACTIONS (4)
  - Throat clearing [Unknown]
  - Memory impairment [Unknown]
  - Wrong technique in product usage process [Unknown]
  - Disturbance in attention [Unknown]

NARRATIVE: CASE EVENT DATE: 202008
